FAERS Safety Report 10208545 (Version 2)
Quarter: 2016Q3

REPORT INFORMATION
  Report Type: Spontaneous
  Country: IT (occurrence: IT)
  Receive Date: 20140530
  Receipt Date: 20160715
  Transmission Date: 20161109
  Serious: Yes (Death, Other)
  Sender: FDA-Public Use
  Company Number: IT-BRISTOL-MYERS SQUIBB COMPANY-20810909

PATIENT
  Age: 50 Year

DRUGS (3)
  1. SORAFENIB [Interacting]
     Active Substance: SORAFENIB
     Indication: ANTIRETROVIRAL THERAPY
     Dosage: 400 MG, QD
     Route: 065
  2. EMTRICITABINE/TENOFOVIR DISOPROXIL FUMARATE [Interacting]
     Active Substance: EMTRICITABINE\TENOFOVIR DISOPROXIL
     Indication: ANTIRETROVIRAL THERAPY
     Route: 065
  3. ATAZANAVIR SULFATE [Suspect]
     Active Substance: ATAZANAVIR SULFATE
     Indication: ANTIRETROVIRAL THERAPY
     Route: 065

REACTIONS (3)
  - Drug interaction [Unknown]
  - Hepatotoxicity [Unknown]
  - Oesophageal varices haemorrhage [Fatal]
